FAERS Safety Report 9843526 (Version 1)
Quarter: 2013Q4

REPORT INFORMATION
  Report Type: Spontaneous
  Country: US (occurrence: None)
  Receive Date: 20131223
  Receipt Date: 20131223
  Transmission Date: 20140711
  Serious: Yes (Other)
  Sender: FDA-Public Use
  Company Number: 218286LEO

PATIENT
  Age: 60 Year
  Sex: Female

DRUGS (5)
  1. PICATO GEL [Suspect]
     Indication: ACTINIC KERATOSIS
     Dosage: (1 IN 1 D)
     Dates: start: 20120701
  2. PREDNISOLONE (PREDNISOLONE) [Concomitant]
  3. HORMONE REPLACEMENTS THERAPY (HORMONES AND RELATED AGENTS) [Concomitant]
  4. FISH OIL (FISH OIL) [Concomitant]
  5. CALCIUM (CALCIUM) [Concomitant]

REACTIONS (2)
  - Application site erythema [None]
  - Application site vesicles [None]
